FAERS Safety Report 5692404-4 (Version None)
Quarter: 2008Q1

REPORT INFORMATION
  Report Type: 
  Country: None (occurrence: None)
  Receive Date: 20080331
  Receipt Date: 20080313
  Transmission Date: 20080703
  Serious: Yes (Hospitalization)
  Sender: FDA-Public Use
  Company Number: VNL_00991_2008

PATIENT
  Sex: Female

DRUGS (10)
  1. APO-GO (APO-GO PFS 5 MG/ML SOLUTION FOR- APOMORPHINE HYDROCHLORIDE) [Suspect]
     Indication: PARKINSON'S DISEASE
     Dosage: (DF FOR 1 YEAR 0 MONTHS SUBCUTANEOUS)
     Route: 058
     Dates: start: 20070201, end: 20080201
  2. SIMVASTATIN [Concomitant]
  3. PRAMIPEXOLE DIHYDROCHLORIDE [Concomitant]
  4. CO-BENELDOPA [Concomitant]
  5. MADOPAR CR [Concomitant]
  6. DOMPERIDONE [Concomitant]
  7. FLUOXETINE [Concomitant]
  8. LEVOTHYROXINE SODIUM [Concomitant]
  9. INDERAL LA [Concomitant]
  10. FUROSEMIDE [Concomitant]

REACTIONS (3)
  - APLASTIC ANAEMIA [None]
  - MALAISE [None]
  - TREMOR [None]
